FAERS Safety Report 6850257-2 (Version None)
Quarter: 2010Q3

REPORT INFORMATION
  Report Type: 
  Country: None (occurrence: None)
  Receive Date: 20100716
  Receipt Date: 20071012
  Transmission Date: 20110219
  Serious: No
  Sender: FDA-Public Use
  Company Number: US-PFIZER INC-2007087107

PATIENT
  Sex: Male
  Weight: 108.9 kg

DRUGS (10)
  1. CHANTIX [Suspect]
     Indication: SMOKING CESSATION THERAPY
     Dates: start: 20071011
  2. XANAX [Concomitant]
  3. WARFARIN SODIUM [Concomitant]
  4. PROPOXYPHENE HCL [Concomitant]
  5. METFORMIN HCL [Concomitant]
  6. LANOXIN [Concomitant]
  7. DILTIAZEM [Concomitant]
  8. LIPITOR [Concomitant]
  9. TERAZOSIN HCL [Concomitant]
  10. LISINOPRIL [Concomitant]

REACTIONS (3)
  - ANXIETY [None]
  - INSOMNIA [None]
  - NERVOUSNESS [None]
